FAERS Safety Report 5815393-8 (Version None)
Quarter: 2008Q3

REPORT INFORMATION
  Report Type: 
  Country: None (occurrence: None)
  Receive Date: 20080718
  Receipt Date: 20080708
  Transmission Date: 20090109
  Serious: Yes (Other)
  Sender: FDA-Public Use
  Company Number: GB-PFIZER INC-2008056436

PATIENT
  Age: 36 Year
  Sex: Male
  Weight: 80 kg

DRUGS (4)
  1. CHANTIX [Suspect]
     Indication: SMOKING CESSATION THERAPY
     Route: 048
     Dates: start: 20080521, end: 20080609
  2. BRICANYL [Concomitant]
     Route: 055
  3. BUDESONIDE [Concomitant]
     Route: 055
  4. PREDNISOLONE [Concomitant]
     Indication: ASTHMA
     Dosage: DAILY DOSE:30MG
     Route: 048
     Dates: start: 20080521, end: 20080528

REACTIONS (4)
  - AGITATION [None]
  - ANGER [None]
  - HALLUCINATION, AUDITORY [None]
  - SELF-INJURIOUS IDEATION [None]
